FAERS Safety Report 25134445 (Version 1)
Quarter: 2025Q1

REPORT INFORMATION
  Report Type: Spontaneous
  Country: US (occurrence: None)
  Receive Date: 20250327
  Receipt Date: 20250327
  Transmission Date: 20250409
  Serious: No
  Sender: FDA-CTU
  Company Number: None

PATIENT
  Sex: Male

DRUGS (8)
  1. VIGABATRIN [Suspect]
     Active Substance: VIGABATRIN
     Indication: Epilepsy
     Dosage: FREQUENCY : 3 TIMES A DAY;?OTHER ROUTE : GTUBE;?
     Route: 050
  2. KEPPRA [Concomitant]
     Active Substance: LEVETIRACETAM
  3. TOPIRAMATE [Concomitant]
     Active Substance: TOPIRAMATE
  4. MONTELUKAST SODIUM [Concomitant]
     Active Substance: MONTELUKAST SODIUM
  5. BACLOFEN [Concomitant]
     Active Substance: BACLOFEN
  6. DIAZEPAM [Concomitant]
     Active Substance: DIAZEPAM
  7. GABAPENTIN [Concomitant]
     Active Substance: GABAPENTIN
  8. EUCERIN DAILY HYDRATION S [Concomitant]

REACTIONS (1)
  - Therapy interrupted [None]
